FAERS Safety Report 6801277-5 (Version None)
Quarter: 2010Q2

REPORT INFORMATION
  Report Type: 
  Country: None (occurrence: None)
  Receive Date: 20100629
  Receipt Date: 20100430
  Transmission Date: 20101027
  Serious: Yes (Other)
  Sender: FDA-Public Use
  Company Number: A0857486A

PATIENT
  Age: 20 Year
  Sex: Male

DRUGS (2)
  1. LAMICTAL XR [Suspect]
     Route: 048
     Dates: start: 20100417
  2. CARBATROL [Concomitant]

REACTIONS (3)
  - CONVULSION [None]
  - DIZZINESS EXERTIONAL [None]
  - OVERDOSE [None]
